FAERS Safety Report 10136873 (Version 1)
Quarter: 2014Q2

REPORT INFORMATION
  Report Type: Spontaneous
  Country: IT (occurrence: None)
  Receive Date: 20140425
  Receipt Date: 20140425
  Transmission Date: 20141212
  Serious: Yes (Other)
  Sender: FDA-Public Use
  Company Number: 2298859

PATIENT
  Age: 54 Year
  Sex: Male
  Weight: 113 kg

DRUGS (1)
  1. METHOTREXATE [Suspect]
     Indication: PRODUCT USED FOR UNKNOWN INDICATION
     Dates: start: 20140127, end: 20140209

REACTIONS (7)
  - Dermatitis [None]
  - Hypoproteinaemia [None]
  - Inappropriate schedule of drug administration [None]
  - Anaemia [None]
  - Leukopenia [None]
  - Mucosal inflammation [None]
  - Pyrexia [None]
